FAERS Safety Report 9652183 (Version 1)
Quarter: 2013Q4

REPORT INFORMATION
  Report Type: Spontaneous
  Country: US (occurrence: None)
  Receive Date: 20131025
  Receipt Date: 20131025
  Transmission Date: 20140711
  Serious: Yes (Other)
  Sender: FDA-Public Use
  Company Number: 2013P1020340

PATIENT
  Age: 43 Year
  Sex: Male

DRUGS (1)
  1. DONEPEZIL [Suspect]
     Indication: FRONTOTEMPORAL DEMENTIA

REACTIONS (21)
  - Disturbance in attention [None]
  - Executive dysfunction [None]
  - Condition aggravated [None]
  - Altered state of consciousness [None]
  - Apathy [None]
  - Affect lability [None]
  - Feeling drunk [None]
  - Apraxia [None]
  - Glabellar reflex abnormal [None]
  - Palmomental reflex [None]
  - Aphasia [None]
  - Memory impairment [None]
  - Dyscalculia [None]
  - Aphasia [None]
  - Hypercholesterolaemia [None]
  - Hypertriglyceridaemia [None]
  - Cerebral atrophy [None]
  - Confusional state [None]
  - Delirium [None]
  - Frontotemporal dementia [None]
  - Neurodegenerative disorder [None]
